FAERS Safety Report 4746862-X (Version None)
Quarter: 2005Q3

REPORT INFORMATION
  Report Type: 
  Country: None (occurrence: None)
  Receive Date: 20050817
  Receipt Date: 20050809
  Transmission Date: 20060218
  Serious: Yes (Hospitalization)
  Sender: FDA-Public Use
  Company Number: US-ROCHE-413779

PATIENT
  Age: 68 Year
  Sex: Male

DRUGS (4)
  1. KLONOPIN [Suspect]
     Indication: ANXIETY
     Dosage: HALF A TABLET IN THE MORNING AND HALF A TABLET IN THE EVENING.
     Route: 048
     Dates: start: 20040615, end: 20040723
  2. KLONOPIN [Suspect]
     Dosage: HALF A TABLET IN THE MORNING AND HALF A TABLET IN THE EVENING.
     Route: 048
     Dates: start: 20040725, end: 20050615
  3. KLONOPIN [Suspect]
     Route: 048
     Dates: start: 20050615
  4. ATENOLOL [Concomitant]
     Indication: HYPERTENSION
     Route: 048
     Dates: start: 19950615

REACTIONS (6)
  - ABDOMINAL DISTENSION [None]
  - ANXIETY [None]
  - DEPRESSION [None]
  - DIZZINESS [None]
  - SYNCOPE [None]
  - URINARY TRACT INFECTION [None]
